FAERS Safety Report 9112961 (Version 1)
Quarter: 2013Q1

REPORT INFORMATION
  Report Type: Spontaneous
  Country: US (occurrence: US)
  Receive Date: 20130211
  Receipt Date: 20130211
  Transmission Date: 20140127
  Serious: No
  Sender: FDA-Public Use
  Company Number: US-BAYER-2013-015432

PATIENT
  Age: 51 Year
  Sex: Female

DRUGS (1)
  1. CLIMARA [Suspect]

REACTIONS (2)
  - Hot flush [None]
  - Product adhesion issue [None]
